FAERS Safety Report 5452883-4 (Version None)
Quarter: 2007Q3

REPORT INFORMATION
  Report Type: 
  Country: None (occurrence: None)
  Receive Date: 20070914
  Receipt Date: 20070911
  Transmission Date: 20080115
  Serious: Yes (Hospitalization)
  Sender: FDA-Public Use
  Company Number: A0680883A

PATIENT
  Age: 60 Year
  Sex: Female

DRUGS (4)
  1. AVANDIA [Suspect]
     Indication: TYPE 2 DIABETES MELLITUS
     Dosage: 8MG PER DAY
     Route: 048
     Dates: start: 20040101, end: 20070730
  2. GLUCOPHAGE [Concomitant]
  3. SYNTHROID [Concomitant]
  4. PRILOSEC [Concomitant]

REACTIONS (3)
  - JOINT RANGE OF MOTION DECREASED [None]
  - MUSCLE TIGHTNESS [None]
  - MYOCARDIAL INFARCTION [None]
